FAERS Safety Report 6484389-8 (Version None)
Quarter: 2009Q4

REPORT INFORMATION
  Report Type: 
  Country: None (occurrence: None)
  Receive Date: 20091209
  Receipt Date: 20091130
  Transmission Date: 20100525
  Serious: Yes (Hospitalization, Other)
  Sender: FDA-Public Use
  Company Number: US-ABBOTT-09P-163-0606519-00

PATIENT
  Sex: Female
  Weight: 98.972 kg

DRUGS (5)
  1. AZMACORT [Suspect]
     Indication: ASTHMA
     Dates: start: 20030101
  2. AZMACORT [Suspect]
     Dates: end: 20091030
  3. SINGULAIR [Concomitant]
     Indication: ASTHMA
  4. IPRATROPIUM BROMIDE [Concomitant]
     Indication: ASTHMA
     Route: 055
  5. XOPENEX [Concomitant]
     Indication: ASTHMA
     Route: 055

REACTIONS (7)
  - ASTHMA [None]
  - CHEST DISCOMFORT [None]
  - CHEST PAIN [None]
  - CORONARY ARTERY DISEASE [None]
  - CORONARY ARTERY OCCLUSION [None]
  - DYSPNOEA [None]
  - OBSTRUCTIVE AIRWAYS DISORDER [None]
